FAERS Safety Report 8388212 (Version 2)
Quarter: 2013Q1

REPORT INFORMATION
  Report Type: Spontaneous
  Country: US (occurrence: US)
  Receive Date: 20120203
  Receipt Date: 20130228
  Transmission Date: 20140127
  Serious: No
  Sender: FDA-Public Use
  Company Number: US-GLAXOSMITHKLINE-A0928366A

PATIENT
  Age: 26 Year
  Sex: Female
  Weight: 76.4 kg

DRUGS (10)
  1. LAMOTRIGINE [Suspect]
     Indication: BIPOLAR DISORDER
     Dosage: 150MG PER DAY
     Route: 048
     Dates: start: 201006
  2. LAMOTRIGINE [Concomitant]
     Indication: BIPOLAR DISORDER
     Dosage: 150MG PER DAY
     Route: 048
     Dates: start: 200606, end: 200906
  3. TETRACYCLINE [Concomitant]
  4. METROGEL [Concomitant]
     Indication: ACNE
     Route: 061
  5. CLINDAMYCIN GEL [Concomitant]
     Indication: ACNE
     Route: 061
  6. VITAMIN D [Concomitant]
     Dosage: 2000UNIT PER DAY
     Route: 048
  7. ORTHO TRI CYCLEN [Concomitant]
  8. PANTOPRAZOLE [Concomitant]
     Dosage: 20MG PER DAY
     Route: 048
  9. PRENATAL VITAMIN [Concomitant]
     Dosage: 1TAB PER DAY
     Route: 048
  10. FOLIC ACID [Concomitant]
     Dosage: 800MG PER DAY
     Route: 048

REACTIONS (4)
  - Exposure during pregnancy [Unknown]
  - Live birth [Unknown]
  - Pyrexia [Unknown]
  - Complication of delivery [Unknown]
